FAERS Safety Report 16756958 (Version 1)
Quarter: 2019Q3

REPORT INFORMATION
  Report Type: Report from Study
  Country: US (occurrence: US)
  Receive Date: 20190829
  Receipt Date: 20190829
  Transmission Date: 20191005
  Serious: Yes (Death, Hospitalization)
  Sender: FDA-Public Use
  Company Number: US-ACTELION-A-NJ2019-184502

PATIENT
  Age: 86 Year
  Sex: Female
  Weight: 60.32 kg

DRUGS (7)
  1. OXYGEN. [Concomitant]
     Active Substance: OXYGEN
  2. UPTRAVI [Suspect]
     Active Substance: SELEXIPAG
     Dosage: 600 MCG, QAM, 400 MCG, QPM
     Route: 048
  3. UPTRAVI [Suspect]
     Active Substance: SELEXIPAG
     Dosage: 400 MCG, BID
     Route: 048
  4. ELIQUIS [Concomitant]
     Active Substance: APIXABAN
  5. UPTRAVI [Suspect]
     Active Substance: SELEXIPAG
     Indication: PULMONARY ARTERIAL HYPERTENSION
     Dosage: 400 MCG, BID
     Route: 048
  6. SILDENAFIL. [Concomitant]
     Active Substance: SILDENAFIL
  7. AMLODIPINE [Concomitant]
     Active Substance: AMLODIPINE BESYLATE

REACTIONS (14)
  - Diarrhoea [Recovered/Resolved]
  - Hypotension [Unknown]
  - Condition aggravated [Unknown]
  - Hypoxia [Unknown]
  - Death [Fatal]
  - Syncope [Recovered/Resolved]
  - Sleep disorder [Unknown]
  - Anal incontinence [Unknown]
  - Muscle spasms [Recovering/Resolving]
  - Cough [Unknown]
  - Productive cough [Unknown]
  - Bowel movement irregularity [Unknown]
  - Pain in extremity [Recovered/Resolved]
  - Flatulence [Unknown]

NARRATIVE: CASE EVENT DATE: 201812
